FAERS Safety Report 8996058 (Version 1)
Quarter: 2013Q1

REPORT INFORMATION
  Report Type: Spontaneous
  Country: US (occurrence: US)
  Receive Date: 20130103
  Receipt Date: 20130103
  Transmission Date: 20140127
  Serious: No
  Sender: FDA-Public Use
  Company Number: US-ABBOTT-12P-163-0962775-00

PATIENT
  Age: 70 Year
  Sex: Female
  Weight: 113.5 kg

DRUGS (5)
  1. SYNTHROID [Suspect]
     Indication: HYPOTHYROIDISM
     Dates: start: 201110
  2. COZAAR [Concomitant]
     Indication: HYPERTENSION
  3. TOPROL [Concomitant]
     Indication: HYPERTENSION
  4. GLIMEPIRIDE [Concomitant]
     Indication: DIABETES MELLITUS
  5. VITAMIN D3 [Concomitant]
     Indication: PRODUCT USED FOR UNKNOWN INDICATION

REACTIONS (8)
  - Weight increased [Unknown]
  - Hypothyroidism [Unknown]
  - Oedema peripheral [Unknown]
  - Alopecia [Unknown]
  - Hair growth abnormal [Unknown]
  - Dry skin [Unknown]
  - Fatigue [Unknown]
  - Somnolence [Unknown]
